FAERS Safety Report 21866393 (Version 4)
Quarter: 2023Q2

REPORT INFORMATION
  Report Type: Spontaneous
  Country: US (occurrence: US)
  Receive Date: 20230116
  Receipt Date: 20230406
  Transmission Date: 20230722
  Serious: No
  Sender: FDA-Public Use
  Company Number: US-BIOGEN-2023BI01181174

PATIENT
  Age: 73 Year
  Sex: Female

DRUGS (29)
  1. AVONEX [Suspect]
     Active Substance: INTERFERON BETA-1A
     Indication: Multiple sclerosis
     Route: 050
     Dates: start: 19981201, end: 20050222
  2. AVONEX [Suspect]
     Active Substance: INTERFERON BETA-1A
     Route: 050
     Dates: start: 20170316
  3. AVONEX [Suspect]
     Active Substance: INTERFERON BETA-1A
     Route: 050
  4. AVONEX [Suspect]
     Active Substance: INTERFERON BETA-1A
  5. AVONEX [Suspect]
     Active Substance: INTERFERON BETA-1A
  6. AVONEX [Suspect]
     Active Substance: INTERFERON BETA-1A
  7. AVONEX [Suspect]
     Active Substance: INTERFERON BETA-1A
  8. AVONEX [Suspect]
     Active Substance: INTERFERON BETA-1A
  9. AVONEX [Suspect]
     Active Substance: INTERFERON BETA-1A
  10. AVONEX [Suspect]
     Active Substance: INTERFERON BETA-1A
  11. AVONEX [Suspect]
     Active Substance: INTERFERON BETA-1A
  12. AVONEX [Suspect]
     Active Substance: INTERFERON BETA-1A
  13. AVONEX [Suspect]
     Active Substance: INTERFERON BETA-1A
  14. VITAMIN B COMPLEX [Concomitant]
     Active Substance: CYANOCOBALAMIN\DEXPANTHENOL\NIACINAMIDE\PYRIDOXINE HYDROCHLORIDE\RIBOFLAVIN 5^-PHOSPHATE SODIUM\THIA
     Route: 050
  15. GABAPENTIN [Concomitant]
     Active Substance: GABAPENTIN
     Route: 050
  16. RESTASIS [Concomitant]
     Active Substance: CYCLOSPORINE
     Dosage: 0.05 PERCENT 0.4ML VIAL (30/BX)
     Route: 050
  17. VALSARTAN [Concomitant]
     Active Substance: VALSARTAN
     Route: 050
  18. SYMBICORT [Concomitant]
     Active Substance: BUDESONIDE\FORMOTEROL FUMARATE DIHYDRATE
     Dosage: 160-4.5MCG INH (11G)
     Route: 050
  19. ESTRACE [Concomitant]
     Active Substance: ESTRADIOL
     Route: 050
  20. KLONOPIN [Concomitant]
     Active Substance: CLONAZEPAM
     Route: 050
  21. ZOLOFT [Concomitant]
     Active Substance: SERTRALINE HYDROCHLORIDE
     Route: 050
  22. IMITREX [Concomitant]
     Active Substance: SUMATRIPTAN SUCCINATE
     Route: 050
  23. SYNTHROID [Concomitant]
     Active Substance: LEVOTHYROXINE SODIUM
     Route: 050
  24. CRESTOR [Concomitant]
     Active Substance: ROSUVASTATIN CALCIUM
     Route: 050
  25. IPRATROPIUM BROMIDE [Concomitant]
     Active Substance: IPRATROPIUM BROMIDE\IPRATROPIUM BROMIDE ANHYDROUS
     Dosage: 0.03 PERCENT 30ML NSL
     Route: 050
  26. ZANAFLEX [Concomitant]
     Active Substance: TIZANIDINE HYDROCHLORIDE
     Route: 050
  27. D3 MAXIMUM STRENGTH [Concomitant]
     Route: 050
  28. ALBUTEROL SULFATE [Concomitant]
     Active Substance: ALBUTEROL SULFATE
     Dosage: 2MG/5ML
     Route: 050
  29. SEROQUEL [Concomitant]
     Active Substance: QUETIAPINE FUMARATE
     Route: 050

REACTIONS (6)
  - Product dose omission issue [Unknown]
  - Respiratory syncytial virus infection [Unknown]
  - Multiple sclerosis relapse [Unknown]
  - Chronic obstructive pulmonary disease [Unknown]
  - Asthma [Unknown]
  - Pyrexia [Unknown]

NARRATIVE: CASE EVENT DATE: 20221201
